FAERS Safety Report 8889035 (Version 1)
Quarter: 2012Q4

REPORT INFORMATION
  Report Type: 
  Country: FR (occurrence: FR)
  Receive Date: 20121106
  Receipt Date: 20121106
  Transmission Date: 20130627
  Serious: Yes (Hospitalization, Other)
  Sender: FDA-Public Use
  Company Number: FR-BRISTOL-MYERS SQUIBB COMPANY-17083361

PATIENT
  Age: 55 Year
  Sex: Male

DRUGS (10)
  1. COUMADIN [Suspect]
     Indication: ATRIAL FIBRILLATION
     Route: 048
     Dates: end: 20120917
  2. COUMADIN [Suspect]
     Indication: ARRHYTHMIA
     Route: 048
     Dates: end: 20120917
  3. SERETIDE [Concomitant]
     Dosage: 1 Df:500 units NOS
Seretide Diskus
  4. DIFFU-K [Concomitant]
  5. CORDARONE [Concomitant]
  6. DIGOXIN [Concomitant]
  7. CORTANCYL [Concomitant]
  8. LASILIX [Concomitant]
  9. CACIT D3 [Concomitant]
  10. BRONCHODUAL [Concomitant]

REACTIONS (6)
  - Haemorrhage [Recovered/Resolved]
  - Rectal haemorrhage [Recovered/Resolved]
  - Syncope [Unknown]
  - Fall [Unknown]
  - Overdose [Unknown]
  - Haematoma [Unknown]
